FAERS Safety Report 23952823 (Version 1)
Quarter: 2024Q2

REPORT INFORMATION
  Report Type: Spontaneous
  Country: KR (occurrence: KR)
  Receive Date: 20240607
  Receipt Date: 20240607
  Transmission Date: 20240715
  Serious: Yes (Other)
  Sender: FDA-Public Use
  Company Number: KR-009507513-2406KOR000121

PATIENT
  Age: 68 Year
  Sex: Female

DRUGS (7)
  1. JANUVIA [Suspect]
     Active Substance: SITAGLIPTIN PHOSPHATE
     Dosage: 1 DOSAGE FORM, QD
     Route: 048
     Dates: start: 20230614, end: 20230813
  2. METFORMIN HYDROCHLORIDE [Suspect]
     Active Substance: METFORMIN HYDROCHLORIDE
     Dosage: 1 DOSAGE FORM, QD
     Dates: start: 20230614, end: 20230813
  3. PIOGLITAZONE HYDROCHLORIDE [Suspect]
     Active Substance: PIOGLITAZONE HYDROCHLORIDE
     Dosage: 1 DOSAGE FORM, QD
     Dates: start: 20230614, end: 20230813
  4. CLOPIDOGREL BISULFATE [Suspect]
     Active Substance: CLOPIDOGREL BISULFATE
     Dosage: 1 DOSAGE FORM, QD
     Dates: start: 20230614, end: 20230813
  5. ROSUVASTATIN CALCIUM [Suspect]
     Active Substance: ROSUVASTATIN CALCIUM
     Dosage: 1 DOSAGE FORM, QD
     Dates: start: 20230614, end: 20230810
  6. EZETIMIBE [Suspect]
     Active Substance: EZETIMIBE
     Dosage: 0.5 DOSAGE FORM, QD
     Dates: start: 20230614, end: 20230810
  7. CHLORPHENIRAMINE MALEATE\DIHYDROCODEINE BITARTRATE\GUAIFENESIN\METHYLE [Suspect]
     Active Substance: CHLORPHENIRAMINE MALEATE\DIHYDROCODEINE BITARTRATE\GUAIFENESIN\METHYLEPHEDRINE HYDROCHLORIDE, (+/-)
     Dosage: 1 DOSAGE FORM
     Dates: start: 20230614, end: 20230619

REACTIONS (1)
  - Gastrointestinal haemorrhage [Recovered/Resolved]

NARRATIVE: CASE EVENT DATE: 20230614
